FAERS Safety Report 6441550-6 (Version None)
Quarter: 2009Q4

REPORT INFORMATION
  Report Type: 
  Country: None (occurrence: None)
  Receive Date: 20091116
  Receipt Date: 20091106
  Transmission Date: 20100525
  Serious: Yes (Life-Threatening, Hospitalization)
  Sender: FDA-Public Use
  Company Number: GXKR2009NL12353

PATIENT
  Sex: Female
  Weight: 64 kg

DRUGS (2)
  1. RISPERIDONE SANDOZ (NGX) [Suspect]
     Indication: HALLUCINATION, AUDITORY
     Dosage: UNK
     Route: 048
     Dates: start: 20070516, end: 20090501
  2. SEROQUEL [Suspect]
     Indication: MENTAL DISORDER
     Dosage: UNK
     Route: 048
     Dates: start: 20090501

REACTIONS (4)
  - BREAST CANCER [None]
  - GALACTORRHOEA [None]
  - HYPERPROLACTINAEMIA [None]
  - MENSTRUAL DISORDER [None]
